FAERS Safety Report 13064190 (Version 7)
Quarter: 2017Q4

REPORT INFORMATION
  Report Type: Report from Study
  Country: FR (occurrence: FR)
  Receive Date: 20161227
  Receipt Date: 20171004
  Transmission Date: 20180320
  Serious: Yes (Hospitalization)
  Sender: FDA-Public Use
  Company Number: PHHO2016FR018809

PATIENT
  Age: 31 Year
  Sex: Female
  Weight: 62 kg

DRUGS (2)
  1. VOTRIENT [Suspect]
     Active Substance: PAZOPANIB HYDROCHLORIDE
     Indication: DESMOID TUMOUR
     Dosage: UNK
     Route: 048
     Dates: start: 20160309, end: 20161213
  2. PAZOPANIB [Suspect]
     Active Substance: PAZOPANIB
     Indication: DESMOID TUMOUR
     Dosage: 800 MG, QD
     Route: 048
     Dates: start: 20150404, end: 20160308

REACTIONS (1)
  - Polycythaemia [Recovered/Resolved]

NARRATIVE: CASE EVENT DATE: 20160914
